FAERS Safety Report 11058961 (Version 2)
Quarter: 2015Q2

REPORT INFORMATION
  Report Type: Spontaneous
  Country: JP (occurrence: JP)
  Receive Date: 20150423
  Receipt Date: 20150622
  Transmission Date: 20150821
  Serious: Yes (Hospitalization)
  Sender: FDA-Public Use
  Company Number: JP-GLAXOSMITHKLINE-JP2015JPN040484

PATIENT
  Age: 74 Year
  Sex: Female
  Weight: 55 kg

DRUGS (17)
  1. ARASENA-A [Concomitant]
     Active Substance: VIDARABINE
     Dosage: 5 G, QD
  2. VITAMEDIN [Concomitant]
     Active Substance: CYANOCOBALAMIN\PYRIDOXINE HYDROCHLORIDE\THIAMINE
     Dosage: 25 MG, TID
  3. MOHRUS TAPE [Concomitant]
     Active Substance: KETOPROFEN
     Dosage: 40 MG, PRN
  4. VALTREX [Suspect]
     Active Substance: VALACYCLOVIR HYDROCHLORIDE
     Dosage: 500 MG, QD
     Dates: start: 20150326, end: 20150326
  5. NICORANDIL [Concomitant]
     Active Substance: NICORANDIL
     Dosage: 5 MG, TID
  6. PURSENNID [Concomitant]
     Active Substance: SENNOSIDES A AND B
     Dosage: 48 MG, QD
  7. VALTREX [Suspect]
     Active Substance: VALACYCLOVIR HYDROCHLORIDE
     Indication: HERPES ZOSTER
     Dosage: 250 MG, QD
     Route: 048
     Dates: start: 20150323, end: 20150323
  8. PRECIPITATED CALCIUM CARBONATE [Concomitant]
     Active Substance: CALCIUM CARBONATE
     Dosage: 1000 MG, TID
  9. LANTUS [Concomitant]
     Active Substance: INSULIN GLARGINE
     Dosage: UNK DF, UNK
  10. ANTAGOSTIN [Concomitant]
     Dosage: 50 MG, TID
  11. VALTREX [Suspect]
     Active Substance: VALACYCLOVIR HYDROCHLORIDE
     Dosage: 250 MG, QD
     Route: 048
     Dates: start: 20150325, end: 20150325
  12. SENNA [Concomitant]
     Active Substance: SENNA LEAF\SENNOSIDES\SENNOSIDES A AND B
     Dosage: 10.5 G, QD
  13. CLARITIN (JAPAN) [Concomitant]
     Dosage: 10 MG, QD
  14. AMEGYL [Concomitant]
     Dosage: 10 MG, PRN
  15. OMEPRAZOLE. [Concomitant]
     Active Substance: OMEPRAZOLE
     Dosage: 20 MG, QD
  16. NEUROTROPIN [Concomitant]
     Active Substance: NEUROTROPIN
     Dosage: 4 DF, TID
  17. ALLOID G [Concomitant]
     Active Substance: SODIUM ALGINATE
     Dosage: 10 ML, TID

REACTIONS (11)
  - Hallucination, visual [Unknown]
  - Grip strength decreased [Unknown]
  - Extensor plantar response [Unknown]
  - Movement disorder [Unknown]
  - Toxicity to various agents [Unknown]
  - Asthenia [Unknown]
  - Vomiting [Unknown]
  - Nervous system disorder [Recovered/Resolved]
  - Vertigo [Unknown]
  - Malaise [Unknown]
  - Feeling abnormal [Unknown]

NARRATIVE: CASE EVENT DATE: 20150325
